FAERS Safety Report 7619807-2 (Version None)
Quarter: 2011Q3

REPORT INFORMATION
  Report Type: 
  Country: None (occurrence: None)
  Receive Date: 20110719
  Receipt Date: 20110704
  Transmission Date: 20111222
  Serious: Yes (Hospitalization)
  Sender: FDA-Public Use
  Company Number: US-BAYER-2011-058921

PATIENT
  Age: 23 Year
  Sex: Female
  Weight: 47 kg

DRUGS (1)
  1. ASPIRIN [Suspect]
     Dosage: EXPIRATION DATE NOT REPORTED, COUNT SIZE24S
     Route: 048
     Dates: start: 20110704, end: 20110704

REACTIONS (1)
  - VOMITING [None]
